FAERS Safety Report 26099802 (Version 1)
Quarter: 2025Q4

REPORT INFORMATION
  Report Type: Spontaneous
  Country: IN (occurrence: IN)
  Receive Date: 20251128
  Receipt Date: 20251128
  Transmission Date: 20260117
  Serious: No
  Sender: ALKEM
  Company Number: IN-ALKEM LABORATORIES LIMITED-GB-ALKEM-2025-08548

PATIENT
  Age: 48 Year
  Sex: Male

DRUGS (8)
  1. OLANZAPINE [Suspect]
     Active Substance: OLANZAPINE
     Indication: Schizophrenia
     Dosage: UNK
     Route: 065
  2. AMISULPRIDE [Suspect]
     Active Substance: AMISULPRIDE
     Indication: Schizophrenia
     Dosage: 500 MILLIGRAM, QD
     Route: 065
  3. CLOZAPINE [Suspect]
     Active Substance: CLOZAPINE
     Indication: Schizophrenia
     Dosage: 75 MILLIGRAM, QD
     Route: 065
  4. CLOZAPINE [Suspect]
     Active Substance: CLOZAPINE
     Dosage: 550 MILLIGRAM
     Route: 065
  5. CLOZAPINE [Suspect]
     Active Substance: CLOZAPINE
     Dosage: UNK (DOSE REDUCED)
     Route: 065
  6. ARIPIPRAZOLE [Suspect]
     Active Substance: ARIPIPRAZOLE
     Indication: Schizophrenia
     Dosage: 30 MILLIGRAM, QD
     Route: 065
  7. LOXAPINE [Suspect]
     Active Substance: LOXAPINE
     Indication: Schizophrenia
     Dosage: UNK
     Route: 065
  8. RISPERIDONE [Suspect]
     Active Substance: RISPERIDONE
     Indication: Schizophrenia
     Dosage: 5 MILLIGRAM, QD
     Route: 065

REACTIONS (4)
  - Salivary hypersecretion [Unknown]
  - Pain in extremity [Unknown]
  - Dizziness [Unknown]
  - Therapy partial responder [Unknown]
